FAERS Safety Report 12051600 (Version 1)
Quarter: 2016Q1

REPORT INFORMATION
  Report Type: Spontaneous
  Country: US (occurrence: None)
  Receive Date: 20160208
  Receipt Date: 20160208
  Transmission Date: 20160526
  Serious: Yes (Death)
  Sender: FDA-Public Use
  Company Number: None

PATIENT
  Age: 38 Year
  Sex: Male
  Weight: 70.31 kg

DRUGS (1)
  1. CHANTIX [Suspect]
     Active Substance: VARENICLINE TARTRATE
     Indication: SMOKING CESSATION THERAPY
     Dosage: TAKE 1.5 MG BID X 2 WK #28
     Route: 048
     Dates: start: 20160126, end: 20160203

REACTIONS (4)
  - Life support [None]
  - Depression [None]
  - Carbon monoxide poisoning [None]
  - Loss of consciousness [None]

NARRATIVE: CASE EVENT DATE: 20160202
